FAERS Safety Report 23348105 (Version 4)
Quarter: 2024Q2

REPORT INFORMATION
  Report Type: Spontaneous
  Country: JP (occurrence: JP)
  Receive Date: 20231228
  Receipt Date: 20240415
  Transmission Date: 20240716
  Serious: Yes (Life-Threatening, Hospitalization, Other)
  Sender: FDA-Public Use
  Company Number: JP-ABBVIE-5560873

PATIENT
  Age: 50 Year
  Sex: Female
  Weight: 63 kg

DRUGS (29)
  1. HUMIRA [Suspect]
     Active Substance: ADALIMUMAB
     Indication: Pyoderma gangrenosum
     Dosage: FORM STRENGTH: 40MG
     Route: 058
     Dates: start: 20231212, end: 20231212
  2. PREDONINE [Suspect]
     Active Substance: PREDNISOLONE
     Indication: Pyoderma gangrenosum
     Dosage: 5 MG
     Route: 048
  3. PREDONINE [Suspect]
     Active Substance: PREDNISOLONE
     Indication: Pyoderma gangrenosum
     Dosage: 17.5 MG LAST ADMIN DATE: 2023
     Route: 048
     Dates: start: 20230322
  4. PREDONINE [Suspect]
     Active Substance: PREDNISOLONE
     Indication: Pyoderma gangrenosum
     Dosage: 10 MG
     Route: 048
  5. PREDONINE [Suspect]
     Active Substance: PREDNISOLONE
     Indication: Pyoderma gangrenosum
     Dosage: 10 MG
     Route: 048
     Dates: start: 20221214
  6. PREDONINE [Suspect]
     Active Substance: PREDNISOLONE
     Indication: Pyoderma gangrenosum
     Dosage: 20 MILLIGRAM LAST ADMIN DATE: DEC 2023
     Route: 048
     Dates: start: 20231221
  7. PREDONINE [Suspect]
     Active Substance: PREDNISOLONE
     Indication: Pyoderma gangrenosum
     Dosage: 12.5 MG LAST ADMIN DATE: 2023
     Route: 048
     Dates: start: 20230712
  8. PREDONINE [Suspect]
     Active Substance: PREDNISOLONE
     Indication: Pyoderma gangrenosum
     Dosage: 15 MG LAST ADMIN DATE: FEB 2023
     Route: 048
     Dates: start: 20230201
  9. PREDONINE [Suspect]
     Active Substance: PREDNISOLONE
     Indication: Pyoderma gangrenosum
     Dosage: 40 MILLIGRAM LAST ADMIN DATE: DEC 2023
     Route: 048
     Dates: start: 20231220
  10. PREDONINE [Suspect]
     Active Substance: PREDNISOLONE
     Indication: Pyoderma gangrenosum
     Dosage: 20 MG LAST ADMIN DATE:2023
     Route: 048
     Dates: start: 20230208
  11. PREDONINE [Suspect]
     Active Substance: PREDNISOLONE
     Indication: Pyoderma gangrenosum
     Dosage: 15 MG LAST ADMIN DATE: 2023
     Route: 048
     Dates: start: 20230531
  12. PREDONINE [Suspect]
     Active Substance: PREDNISOLONE
     Indication: Pyoderma gangrenosum
     Dosage: 20 MG LAST ADMIN DATE: 2023
     Route: 048
     Dates: start: 20231115
  13. PREDONINE [Suspect]
     Active Substance: PREDNISOLONE
     Indication: Pyoderma gangrenosum
     Dosage: 20 MG (0.33 MG/KG) LAST ADMIN DATE: 2021
     Route: 048
     Dates: start: 20210616
  14. PREDONINE [Suspect]
     Active Substance: PREDNISOLONE
     Indication: Pyoderma gangrenosum
     Dosage: 10 MILLIGRAM LAST ADMIN DATE: DEC 2023
     Route: 048
     Dates: start: 20231225
  15. PREDONINE [Suspect]
     Active Substance: PREDNISOLONE
     Indication: Pyoderma gangrenosum
     Route: 048
  16. PREDONINE [Suspect]
     Active Substance: PREDNISOLONE
     Indication: Pyoderma gangrenosum
     Dosage: 15 MG LAST ADMIN DATE: DEC 2022
     Route: 048
     Dates: start: 20221207
  17. PREDONINE [Suspect]
     Active Substance: PREDNISOLONE
     Indication: Pyoderma gangrenosum
     Dosage: 10 MG LAST ADMIN DATE: 2023
     Route: 048
     Dates: start: 20230802
  18. PREDONINE [Suspect]
     Active Substance: PREDNISOLONE
     Indication: Pyoderma gangrenosum
     Dosage: 5 MILLIGRAM
     Route: 048
     Dates: start: 20231228, end: 20231230
  19. PREDONINE [Suspect]
     Active Substance: PREDNISOLONE
     Indication: Pyoderma gangrenosum
     Dosage: 5 MG LAST ADMIN DATE: 2023
     Route: 048
     Dates: start: 20230104
  20. PREDONINE [Suspect]
     Active Substance: PREDNISOLONE
     Indication: Pyoderma gangrenosum
     Dosage: 20 MG (0.33 MG/KG)
     Route: 048
     Dates: start: 20210811
  21. PREDONINE [Suspect]
     Active Substance: PREDNISOLONE
     Indication: Pyoderma gangrenosum
     Dosage: 15 MG
     Route: 048
  22. PREDONINE [Suspect]
     Active Substance: PREDNISOLONE
     Indication: Pyoderma gangrenosum
     Dosage: 20 MG (0.33 MG/KG) LAST ADMIN DATE: 2022
     Route: 048
     Dates: start: 20221130
  23. MESALAMINE [Concomitant]
     Active Substance: MESALAMINE
     Indication: Crohn^s disease
     Dosage: TIME INTERVAL: 0.33333333 DAYS: 3000 MILLIGRAM
     Route: 048
  24. LOPERAMIDE HYDROCHLORIDE [Concomitant]
     Active Substance: LOPERAMIDE HYDROCHLORIDE
     Indication: Product used for unknown indication
     Dosage: 1 MILLIGRAM FORM STRENGTH: 1MG
     Route: 048
  25. SCOPOLAMINE [Concomitant]
     Active Substance: SCOPOLAMINE
     Indication: Product used for unknown indication
     Dosage: FORM STRENGTH: 10MG
     Route: 048
  26. LOXOPROFEN SODIUM [Suspect]
     Active Substance: LOXOPROFEN SODIUM
     Indication: Product used for unknown indication
     Dosage: TIME INTERVAL: 0.33333333 DAYS: 180 MILLIGRAM
     Route: 048
     Dates: start: 20231212, end: 20231218
  27. REBAMIPIDE [Concomitant]
     Active Substance: REBAMIPIDE
     Indication: Product used for unknown indication
     Dosage: TIME INTERVAL: 0.33333333 DAYS: 300 MILLIGRAM FORM STRENGTH: 100MG
     Route: 048
     Dates: start: 20231212, end: 20231218
  28. ACETAMINOPHEN [Concomitant]
     Active Substance: ACETAMINOPHEN
     Indication: Product used for unknown indication
     Dosage: TIME INTERVAL: 0.16666667 DAYS: 1200 MILLIGRAM FORM STRENGTH: 200MG
     Route: 048
     Dates: start: 20231028
  29. CLOSTRIDIUM BUTYRICUM SPORES STRAIN M-55 [Concomitant]
     Active Substance: CLOSTRIDIUM BUTYRICUM SPORES STRAIN M-55
     Indication: Product used for unknown indication
     Dosage: TIME INTERVAL: 0.33333333 DAYS: 6 TABLET FORM STRENGTH: 20

REACTIONS (19)
  - Faeces discoloured [Recovered/Resolved]
  - Nausea [Recovered/Resolved]
  - Pain [Unknown]
  - Anaemia of chronic disease [Unknown]
  - Vomiting [Recovered/Resolved]
  - Gallbladder enlargement [Unknown]
  - Feeding disorder [Unknown]
  - Gastric ulcer haemorrhage [Unknown]
  - Cholelithiasis [Unknown]
  - Cardiomegaly [Unknown]
  - Cardiac failure acute [Unknown]
  - Pericardial effusion [Unknown]
  - Pleural effusion [Unknown]
  - Pyrexia [Recovering/Resolving]
  - Altered state of consciousness [Unknown]
  - Epigastric discomfort [Unknown]
  - Endocarditis [Recovered/Resolved]
  - Aortic valve incompetence [Unknown]
  - Mouth ulceration [Unknown]

NARRATIVE: CASE EVENT DATE: 20231201
